FAERS Safety Report 4274689-4 (Version None)
Quarter: 2004Q1

REPORT INFORMATION
  Report Type: 
  Country: None (occurrence: None)
  Receive Date: 20040120
  Receipt Date: 20040120
  Transmission Date: 20041129
  Serious: Yes (Other)
  Sender: FDA-Public Use
  Company Number: None

PATIENT
  Age: 47 Year
  Sex: Male
  Weight: 61.2356 kg

DRUGS (1)
  1. FORTOVASE [Suspect]
     Indication: HIV INFECTION
     Dosage: 6 CAPS PO TID
     Route: 048

REACTIONS (3)
  - OESOPHAGEAL HAEMORRHAGE [None]
  - OESOPHAGEAL PAIN [None]
  - PHARMACEUTICAL PRODUCT COMPLAINT [None]
